FAERS Safety Report 12886307 (Version 2)
Quarter: 2016Q4

REPORT INFORMATION
  Report Type: Spontaneous
  Country: US (occurrence: US)
  Receive Date: 20161026
  Receipt Date: 20161128
  Transmission Date: 20170207
  Serious: No
  Sender: FDA-Public Use
  Company Number: US-PFIZER INC-2016494985

PATIENT

DRUGS (1)
  1. ETOMIDATE. [Suspect]
     Active Substance: ETOMIDATE
     Dosage: UNK, SINGLE
     Route: 042

REACTIONS (1)
  - Drug ineffective [Unknown]
